FAERS Safety Report 14696644 (Version 1)
Quarter: 2018Q1

REPORT INFORMATION
  Report Type: Spontaneous
  Country: US (occurrence: US)
  Receive Date: 20180330
  Receipt Date: 20180330
  Transmission Date: 20180509
  Serious: No
  Sender: FDA-Public Use
  Company Number: US-SA-2017SA062725

PATIENT
  Age: 36 Year
  Sex: Female

DRUGS (1)
  1. ALLEGRA ALLERGY [Suspect]
     Active Substance: FEXOFENADINE HYDROCHLORIDE
     Indication: MULTIPLE ALLERGIES
     Dosage: DOSE IS 180 MQ
     Route: 048
     Dates: end: 20170405

REACTIONS (4)
  - Rhinorrhoea [Unknown]
  - Drug ineffective [Unknown]
  - Cough [Unknown]
  - Sinus disorder [Unknown]
